FAERS Safety Report 4492392-2 (Version None)
Quarter: 2004Q4

REPORT INFORMATION
  Report Type: 
  Country: None (occurrence: None)
  Receive Date: 20041102
  Receipt Date: 20041102
  Transmission Date: 20050328
  Serious: No
  Sender: FDA-Public Use
  Company Number: None

PATIENT
  Age: 70 Year
  Sex: Female
  Weight: 85.7298 kg

DRUGS (1)
  1. HYDROCODINE/HOMATROPINE [Suspect]
     Indication: COUGH
     Dosage: ONE TAB Q 6 H COUGH
     Dates: start: 20040229

REACTIONS (5)
  - HAEMATURIA [None]
  - PHARMACEUTICAL PRODUCT COMPLAINT [None]
  - PRURITUS [None]
  - RASH [None]
  - VOMITING [None]
